FAERS Safety Report 9418055 (Version 1)
Quarter: 2013Q3

REPORT INFORMATION
  Report Type: Spontaneous
  Country: US (occurrence: US)
  Receive Date: 20130724
  Receipt Date: 20130724
  Transmission Date: 20140515
  Serious: Yes (Hospitalization)
  Sender: FDA-Public Use
  Company Number: US-UCBSA-092035

PATIENT
  Age: 49 Year
  Sex: Female
  Weight: 53 kg

DRUGS (3)
  1. CIMZIA [Suspect]
     Indication: CROHN^S DISEASE
     Dosage: NOT GIVEN AS ORDERED BY PHYSICIAN
     Dates: end: 201208
  2. CIMZIA [Suspect]
     Indication: CROHN^S DISEASE
     Dates: start: 201211, end: 201305
  3. ADVIL [Suspect]
     Indication: PAIN
     Dosage: HEAVY DOSES
     Dates: start: 2012

REACTIONS (4)
  - Crohn^s disease [Unknown]
  - Rheumatoid arthritis [Not Recovered/Not Resolved]
  - Gastrointestinal haemorrhage [Unknown]
  - Circumstance or information capable of leading to medication error [Unknown]
